FAERS Safety Report 7559850-5 (Version None)
Quarter: 2011Q2

REPORT INFORMATION
  Report Type: 
  Country: None (occurrence: None)
  Receive Date: 20110621
  Receipt Date: 20110616
  Transmission Date: 20111010
  Serious: Yes (Hospitalization, Other)
  Sender: FDA-Public Use
  Company Number: US-PFIZER INC-2010069366

PATIENT
  Sex: Male

DRUGS (1)
  1. CHANTIX [Suspect]
     Indication: SMOKING CESSATION THERAPY
     Dosage: 1 MG, TWICE DAILY
     Dates: start: 20091229, end: 20100101

REACTIONS (9)
  - JOINT INJURY [None]
  - SUICIDE ATTEMPT [None]
  - PHYSICAL ASSAULT [None]
  - INTENTIONAL OVERDOSE [None]
  - ULNAR NERVE INJURY [None]
  - PSYCHOTIC DISORDER [None]
  - IMPAIRED DRIVING ABILITY [None]
  - ABNORMAL BEHAVIOUR [None]
  - LIMB INJURY [None]
